FAERS Safety Report 7919784-0 (Version None)
Quarter: 2011Q4

REPORT INFORMATION
  Report Type: 
  Country: None (occurrence: None)
  Receive Date: 20111117
  Receipt Date: 20111117
  Transmission Date: 20120403
  Serious: Yes (Other)
  Sender: FDA-Public Use
  Company Number: None

PATIENT
  Age: 60 Year
  Sex: Female
  Weight: 90.718 kg

DRUGS (2)
  1. SYNTHROID [Concomitant]
     Indication: AUTOIMMUNE THYROIDITIS
     Dosage: 1
     Route: 048
     Dates: start: 20080128, end: 20111117
  2. SYNTHROID [Suspect]
     Indication: HYPOTHYROIDISM
     Dosage: 1
     Route: 048
     Dates: start: 20060128, end: 20080128

REACTIONS (5)
  - PRODUCT QUALITY ISSUE [None]
  - NIGHTMARE [None]
  - INSOMNIA [None]
  - NERVOUSNESS [None]
  - FEELING JITTERY [None]
